FAERS Safety Report 9303334 (Version 1)
Quarter: 2013Q2

REPORT INFORMATION
  Report Type: Spontaneous
  Country: US (occurrence: US)
  Receive Date: 20130522
  Receipt Date: 20130522
  Transmission Date: 20140414
  Serious: No
  Sender: FDA-Public Use
  Company Number: US-PFIZER INC-2013154947

PATIENT
  Age: 10 Year
  Sex: Male
  Weight: 25.4 kg

DRUGS (1)
  1. CHILDRENS ADVIL [Suspect]
     Indication: ORAL PAIN
     Dosage: UNK
     Route: 048
     Dates: start: 20130519

REACTIONS (1)
  - Urticaria [Not Recovered/Not Resolved]
